FAERS Safety Report 19076615 (Version 1)
Quarter: 2021Q1

REPORT INFORMATION
  Report Type: Spontaneous
  Country: NL (occurrence: NL)
  Receive Date: 20210331
  Receipt Date: 20210331
  Transmission Date: 20210420
  Serious: Yes (Disabling)
  Sender: FDA-Public Use
  Company Number: NL-JNJFOC-20210341055

PATIENT

DRUGS (6)
  1. METHOTREXATE. [Concomitant]
     Active Substance: METHOTREXATE
     Indication: VASCULITIS
     Dosage: 20 MG, 1/WEEK
     Route: 048
  2. REMICADE [Suspect]
     Active Substance: INFLIXIMAB
     Indication: COLITIS ULCERATIVE
     Dosage: THREE INDUCTION DOSES AT 5 MG/KG OVER 6 WEEKS
     Route: 042
  3. AZATHIOPRINE. [Suspect]
     Active Substance: AZATHIOPRINE
     Indication: COLITIS ULCERATIVE
     Route: 065
  4. REMICADE [Suspect]
     Active Substance: INFLIXIMAB
     Dosage: ESCALATED TO 10 MG/KG EVERY 8 WEEKS
     Route: 042
  5. MESALAMINE. [Suspect]
     Active Substance: MESALAMINE
     Indication: COLITIS ULCERATIVE
     Route: 065
  6. REMICADE [Suspect]
     Active Substance: INFLIXIMAB
     Dosage: THREE PLANNED INDUCTION DOSES OVER 6 WEEKS (WEEK 0?2?6) FOLLOWED BY MAINTENANCE THERAPY EVERY 8 WEEK
     Route: 042

REACTIONS (4)
  - Microscopic polyangiitis [Recovered/Resolved with Sequelae]
  - C-reactive protein increased [Recovered/Resolved]
  - Drug level below therapeutic [Recovered/Resolved]
  - Overdose [Unknown]
